FAERS Safety Report 20049249 (Version 9)
Quarter: 2023Q4

REPORT INFORMATION
  Report Type: Spontaneous
  Country: US (occurrence: US)
  Receive Date: 20211109
  Receipt Date: 20231222
  Transmission Date: 20240110
  Serious: Yes (Other)
  Sender: FDA-Public Use
  Company Number: US-PFIZER INC-2021861548

PATIENT
  Age: 72 Year
  Sex: Female
  Weight: 65.32 kg

DRUGS (4)
  1. IBRANCE [Suspect]
     Active Substance: PALBOCICLIB
     Indication: Breast cancer female
     Dosage: 125 MG
  2. IBRANCE [Suspect]
     Active Substance: PALBOCICLIB
     Dosage: 100 MG
  3. IBRANCE [Suspect]
     Active Substance: PALBOCICLIB
     Dosage: UNK
  4. IBRANCE [Suspect]
     Active Substance: PALBOCICLIB
     Dosage: 75 MG

REACTIONS (9)
  - Neutrophil count decreased [Not Recovered/Not Resolved]
  - Lip blister [Unknown]
  - Rash erythematous [Unknown]
  - Gastrointestinal disorder [Unknown]
  - Malaise [Unknown]
  - Somnolence [Unknown]
  - Middle insomnia [Unknown]
  - Weight decreased [Unknown]
  - Intentional product misuse [Unknown]

NARRATIVE: CASE EVENT DATE: 20211201
